FAERS Safety Report 10012904 (Version 1)
Quarter: 2014Q1

REPORT INFORMATION
  Report Type: Spontaneous
  Country: US (occurrence: US)
  Receive Date: 20140314
  Receipt Date: 20140314
  Transmission Date: 20141002
  Serious: Yes (Hospitalization)
  Sender: FDA-Public Use
  Company Number: US-ASTRAZENECA-2014SE16551

PATIENT
  Sex: Male

DRUGS (3)
  1. BRILINTA [Suspect]
     Dosage: 180 MG LOADING DOSE
     Route: 048
  2. BRILINTA [Suspect]
     Route: 048
  3. METOPROLOL [Concomitant]

REACTIONS (5)
  - Ventricular asystole [Recovered/Resolved]
  - Syncope [Recovered/Resolved]
  - Bradycardia [Recovered/Resolved]
  - Dysstasia [Recovered/Resolved]
  - Abasia [Recovered/Resolved]
